FAERS Safety Report 19160024 (Version 1)
Quarter: 2021Q2

REPORT INFORMATION
  Report Type: Spontaneous
  Country: US (occurrence: US)
  Receive Date: 20210420
  Receipt Date: 20210420
  Transmission Date: 20210717
  Serious: Yes (Hospitalization)
  Sender: FDA-Public Use
  Company Number: US-ELI_LILLY_AND_COMPANY-US202104004601

PATIENT
  Sex: Male

DRUGS (4)
  1. HUMULIN N [Suspect]
     Active Substance: INSULIN HUMAN
     Dosage: 36 U, BID
     Route: 058
  2. HUMULIN R [Suspect]
     Active Substance: INSULIN HUMAN
     Indication: TYPE 1 DIABETES MELLITUS
     Dosage: UNK UNK, UNKNOWN
     Route: 058
     Dates: start: 1999
  3. HUMULIN R [Suspect]
     Active Substance: INSULIN HUMAN
     Dosage: 38 U, BID
     Route: 058
  4. HUMULIN N [Suspect]
     Active Substance: INSULIN HUMAN
     Indication: TYPE 1 DIABETES MELLITUS
     Dosage: UNK UNK, UNKNOWN
     Route: 058
     Dates: start: 1963

REACTIONS (11)
  - Rib fracture [Recovered/Resolved]
  - Visual impairment [Not Recovered/Not Resolved]
  - Injection site induration [Not Recovered/Not Resolved]
  - Hepatomegaly [Not Recovered/Not Resolved]
  - Injection site injury [Not Recovered/Not Resolved]
  - Therapeutic response increased [Recovered/Resolved]
  - Injection site scar [Not Recovered/Not Resolved]
  - Diaphragmatic rupture [Recovered/Resolved]
  - Blood glucose decreased [Recovered/Resolved]
  - Road traffic accident [Recovered/Resolved]
  - Pneumothorax [Recovered/Resolved]

NARRATIVE: CASE EVENT DATE: 1976
